FAERS Safety Report 7234557-2 (Version None)
Quarter: 2011Q1

REPORT INFORMATION
  Report Type: 
  Country: None (occurrence: None)
  Receive Date: 20110119
  Receipt Date: 20110117
  Transmission Date: 20110831
  Serious: Yes (Hospitalization)
  Sender: FDA-Public Use
  Company Number: ES-BRISTOL-MYERS SQUIBB COMPANY-15489693

PATIENT
  Sex: Female

DRUGS (2)
  1. REYATAZ [Suspect]
  2. TRUVADA [Suspect]

REACTIONS (1)
  - RENAL FAILURE [None]
